FAERS Safety Report 16543199 (Version 1)
Quarter: 2019Q3

REPORT INFORMATION
  Report Type: Spontaneous
  Country: IL (occurrence: IL)
  Receive Date: 20190709
  Receipt Date: 20190709
  Transmission Date: 20191004
  Serious: Yes (Other)
  Sender: FDA-Public Use
  Company Number: IL-GLAXOSMITHKLINE-IL2019EME100573

PATIENT

DRUGS (1)
  1. VENTOLIN [Suspect]
     Active Substance: ALBUTEROL SULFATE
     Indication: PRODUCT USED FOR UNKNOWN INDICATION
     Dosage: UNK,0.5 ML (2.5 MG) X 3/D

REACTIONS (5)
  - Tremor [Unknown]
  - Sinus tachycardia [Unknown]
  - Asthenia [Unknown]
  - Palpitations [Unknown]
  - Heart rate increased [Unknown]

NARRATIVE: CASE EVENT DATE: 20190530
